FAERS Safety Report 19144539 (Version 2)
Quarter: 2021Q2

REPORT INFORMATION
  Report Type: Report from Study
  Country: BR (occurrence: BR)
  Receive Date: 20210416
  Receipt Date: 20210430
  Transmission Date: 20210717
  Serious: Yes (Hospitalization, Other)
  Sender: FDA-Public Use
  Company Number: NVSC2021BR081609

PATIENT
  Age: 67 Year
  Sex: Female
  Weight: 56.5 kg

DRUGS (6)
  1. DECADRON [Concomitant]
     Active Substance: DEXAMETHASONE
     Indication: ANTIINFLAMMATORY THERAPY
     Dosage: 4 MG, QD
     Route: 048
     Dates: start: 20210319, end: 20210325
  2. SANDOSTATIN [Suspect]
     Active Substance: OCTREOTIDE ACETATE
  3. BROMOPRIDE [Concomitant]
     Active Substance: BROMOPRIDE
     Indication: GASTROINTESTINAL MOTILITY DISORDER
     Dosage: 10 MG, BID
     Route: 048
     Dates: start: 20210319, end: 20210325
  4. SANDOSTATIN [Suspect]
     Active Substance: OCTREOTIDE ACETATE
     Indication: NEOPLASM
     Dosage: UNK
     Route: 065
  5. SANDOSTATIN [Suspect]
     Active Substance: OCTREOTIDE ACETATE
  6. XARELTO [Concomitant]
     Active Substance: RIVAROXABAN
     Indication: ANTICOAGULANT THERAPY
     Dosage: 30 MG, QD
     Route: 048
     Dates: start: 20210319, end: 20210325

REACTIONS (20)
  - Intestinal obstruction [Recovered/Resolved]
  - Bladder disorder [Recovered/Resolved]
  - Wrong technique in product usage process [Unknown]
  - Hydronephrosis [Recovered/Resolved]
  - Swelling [Unknown]
  - Metastases to peritoneum [Recovered/Resolved]
  - Small intestinal obstruction [Recovering/Resolving]
  - Abdominal pain [Unknown]
  - Gastritis [Recovered/Resolved]
  - Inflammation [Unknown]
  - Eye disorder [Unknown]
  - Post procedural complication [Unknown]
  - Dyspepsia [Unknown]
  - Vomiting [Recovered/Resolved]
  - Large intestinal obstruction [Unknown]
  - Blood pressure decreased [Unknown]
  - Pain [Recovered/Resolved]
  - Faecal vomiting [Recovering/Resolving]
  - Neoplasm [Unknown]
  - Malaise [Unknown]

NARRATIVE: CASE EVENT DATE: 20210219
